FAERS Safety Report 14061176 (Version 4)
Quarter: 2017Q4

REPORT INFORMATION
  Report Type: Report from Study
  Country: US (occurrence: US)
  Receive Date: 20171008
  Receipt Date: 20171129
  Transmission Date: 20180321
  Serious: No
  Sender: FDA-Public Use
  Company Number: US-AMGEN-USASL2017150456

PATIENT
  Sex: Male

DRUGS (1)
  1. ENBREL [Suspect]
     Active Substance: ETANERCEPT
     Indication: RHEUMATOID ARTHRITIS
     Dosage: 50 MG, QWK
     Route: 065

REACTIONS (6)
  - Tremor [Recovered/Resolved]
  - Constipation [Recovered/Resolved]
  - Fine motor skill dysfunction [Unknown]
  - Anxiety disorder [Recovered/Resolved]
  - Diarrhoea [Recovered/Resolved]
  - Feeling jittery [Recovered/Resolved]
